FAERS Safety Report 16731792 (Version 2)
Quarter: 2019Q3

REPORT INFORMATION
  Report Type: Spontaneous
  Country: NL (occurrence: NL)
  Receive Date: 20190822
  Receipt Date: 20190930
  Transmission Date: 20191005
  Serious: Yes (Other)
  Sender: FDA-Public Use
  Company Number: NL-MYLANLABS-2019M1073700

PATIENT
  Sex: Male

DRUGS (17)
  1. ALPRAZOLAM MYLAN 0,25 MG TABLETTEN [Suspect]
     Active Substance: ALPRAZOLAM
     Indication: SOMATIC SYMPTOM DISORDER
     Dosage: UNK
     Route: 048
     Dates: start: 2017
  2. MACROGOL [Concomitant]
     Active Substance: POLYETHYLENE GLYCOLS
     Dosage: 1 OR 2 SACHETS WHEN NECESSARY
     Route: 065
  3. ALPRAZOLAM MYLAN 0,25 MG TABLETTEN [Suspect]
     Active Substance: ALPRAZOLAM
     Indication: POST-TRAUMATIC STRESS DISORDER
     Dosage: 0.25 MILLIGRAM, QID
     Route: 048
     Dates: start: 20190707, end: 20190720
  4. NITROGLYCERINE [Concomitant]
     Active Substance: NITROGLYCERIN
     Dosage: UNK
     Route: 065
  5. ALPRAZOLAM MYLAN 0,25 MG TABLETTEN [Suspect]
     Active Substance: ALPRAZOLAM
     Dosage: 0.25 MILLIGRAM, 4X PER DAY
     Route: 065
     Dates: start: 20190705, end: 20190713
  6. ALPRAZOLAM MYLAN 0,5 MG TABLETTEN [Suspect]
     Active Substance: ALPRAZOLAM
     Dosage: 0.5 MILLIGRAM, 2X PER DAY
     Route: 065
     Dates: start: 20181029, end: 20190708
  7. TEMAZEPAM. [Concomitant]
     Active Substance: TEMAZEPAM
     Indication: SLEEP DISORDER
  8. METOPROLOL. [Concomitant]
     Active Substance: METOPROLOL
     Indication: HYPERTENSION
     Dosage: 10 MILLIGRAM, QD
     Route: 065
  9. ALPRAZOLAM MYLAN 0,25 MG TABLETTEN [Suspect]
     Active Substance: ALPRAZOLAM
     Dosage: 0.25 MILLIGRAM, 3X PER DAY
     Route: 065
     Dates: start: 20190720, end: 20190723
  10. ALPRAZOLAM MYLAN 0,25 MG TABLETTEN [Suspect]
     Active Substance: ALPRAZOLAM
     Dosage: 1.5 DOSAGE FORM, QD
     Route: 048
     Dates: start: 20190727, end: 20190731
  11. ALPRAZOLAM MYLAN 0,25 MG TABLETTEN [Suspect]
     Active Substance: ALPRAZOLAM
     Dosage: 0.25 MILLIGRAM, QD
     Route: 048
     Dates: start: 20190731, end: 20190805
  12. ALPRAZOLAM MYLAN 0,25 MG TABLETTEN [Suspect]
     Active Substance: ALPRAZOLAM
     Dosage: 0.25 MILLIGRAM, BID
     Route: 065
     Dates: start: 20181029, end: 20190705
  13. TEMAZEPAM. [Concomitant]
     Active Substance: TEMAZEPAM
     Indication: MYALGIA
     Dosage: 10 MILLIGRAM, 1X PER DAY 2-4
  14. ALPRAZOLAM MYLAN 0,25 MG TABLETTEN [Suspect]
     Active Substance: ALPRAZOLAM
     Dosage: 0.25 MILLIGRAM, TID
     Route: 048
     Dates: start: 20190720, end: 20190727
  15. ALPRAZOLAM MYLAN 0,25 MG TABLETTEN [Suspect]
     Active Substance: ALPRAZOLAM
     Dosage: 0.5 DOSAGE FORM, QD
     Route: 048
     Dates: start: 20190805, end: 20190810
  16. ALPRAZOLAM MYLAN 0,5 MG TABLETTEN [Suspect]
     Active Substance: ALPRAZOLAM
     Indication: POST-TRAUMATIC STRESS DISORDER
     Dosage: 0.5 MILLIGRAM, 5X PER DAY
     Route: 065
     Dates: start: 20170714, end: 20181029
  17. D-CURA [Concomitant]
     Dosage: 1 TO 2X PER MONTH
     Route: 065

REACTIONS (3)
  - Blood urine present [Unknown]
  - Loss of consciousness [Recovered/Resolved]
  - Withdrawal syndrome [Unknown]

NARRATIVE: CASE EVENT DATE: 201907
